FAERS Safety Report 4846632-8 (Version None)
Quarter: 2005Q4

REPORT INFORMATION
  Report Type: 
  Country: None (occurrence: None)
  Receive Date: 20051202
  Receipt Date: 20051121
  Transmission Date: 20060501
  Serious: Yes (Death)
  Sender: FDA-Public Use
  Company Number: 2004JP002035

PATIENT
  Age: 21 Year
  Sex: Female

DRUGS (3)
  1. PROGRAF [Suspect]
  2. PREDNISONE [Concomitant]
  3. MYCOPHENOLATE MOFETIL (MYCOPHENOLATE MOFETIL) [Concomitant]

REACTIONS (6)
  - B-CELL LYMPHOMA [None]
  - BRAIN HERNIATION [None]
  - CEREBRAL TOXOPLASMOSIS [None]
  - CONVULSION [None]
  - EPSTEIN-BARR VIRUS INFECTION [None]
  - GRAFT VERSUS HOST DISEASE [None]
